FAERS Safety Report 8575000-0 (Version None)
Quarter: 2012Q2

REPORT INFORMATION
  Report Type: 
  Country: None (occurrence: None)
  Receive Date: 20120423
  Receipt Date: 20091030
  Transmission Date: 20120825
  Serious: Yes (Other)
  Sender: FDA-Public Use
  Company Number: PHEH2009US14902

PATIENT
  Sex: Male

DRUGS (1)
  1. EXJADE [Suspect]
     Indication: LYMPHATIC DISORDER
     Dosage: 1625 MG, QD, ORAL
     Route: 048
     Dates: start: 20090911

REACTIONS (2)
  - BLOOD CREATININE ABNORMAL [None]
  - RENAL DISORDER [None]
